FAERS Safety Report 26199896 (Version 1)
Quarter: 2025Q4

REPORT INFORMATION
  Report Type: Spontaneous
  Country: US (occurrence: US)
  Receive Date: 20251225
  Receipt Date: 20251225
  Transmission Date: 20260117
  Serious: No
  Sender: DAIICHI
  Company Number: US-DAIICHI SANKYO, INC.-DS-2025-184655-USAA

PATIENT
  Sex: Male

DRUGS (1)
  1. VANFLYTA [Suspect]
     Active Substance: QUIZARTINIB DIHYDROCHLORIDE
     Indication: Acute monocytic leukaemia
     Dosage: 35.4 MG, QD (35.4 MG DAILY ON DAYS 6-19 OF 28 DAY CYCLE)
     Route: 048

REACTIONS (1)
  - Dysgeusia [Not Recovered/Not Resolved]
